FAERS Safety Report 8586176-3 (Version None)
Quarter: 2012Q3

REPORT INFORMATION
  Report Type: 
  Country: None (occurrence: None)
  Receive Date: 20120810
  Receipt Date: 20120802
  Transmission Date: 20120928
  Serious: Yes (Other)
  Sender: FDA-Public Use
  Company Number: PL-GLAXOSMITHKLINE-B0813913A

PATIENT
  Age: 56 Year
  Sex: Female

DRUGS (5)
  1. LAPATINIB [Suspect]
     Indication: BREAST CANCER
     Dosage: 1250MG TWICE PER DAY
     Route: 065
     Dates: start: 20110406
  2. CAPECITABINE [Suspect]
     Indication: BREAST CANCER
     Dosage: 2000MGM2 PER DAY
     Dates: start: 20110406
  3. LETROZOLE [Concomitant]
     Indication: BREAST CANCER
     Dosage: 2.5MG PER DAY
  4. PACLITAXEL [Suspect]
     Indication: BREAST CANCER
     Dosage: 175MGM2 PER DAY
     Route: 065
     Dates: start: 20100525
  5. TRASTUZUMAB [Concomitant]
     Indication: BREAST CANCER

REACTIONS (5)
  - INFLAMMATION [None]
  - PURULENT DISCHARGE [None]
  - DIARRHOEA [None]
  - PALMAR-PLANTAR ERYTHRODYSAESTHESIA SYNDROME [None]
  - SKIN CHAPPED [None]
